FAERS Safety Report 26100851 (Version 1)
Quarter: 2025Q4

REPORT INFORMATION
  Report Type: Report from Study
  Country: CH (occurrence: CH)
  Receive Date: 20251128
  Receipt Date: 20251128
  Transmission Date: 20260117
  Serious: Yes (Death, Other)
  Sender: ROCHE
  Company Number: CH-ROCHE-10000441640

PATIENT

DRUGS (1)
  1. MYCOPHENOLATE MOFETIL [Suspect]
     Active Substance: MYCOPHENOLATE MOFETIL
     Indication: Immunosuppression
     Route: 065

REACTIONS (8)
  - Graft versus host disease [Fatal]
  - Aspergillus infection [Unknown]
  - Mucormycosis [Unknown]
  - Fungal infection [Unknown]
  - Scedosporium infection [Unknown]
  - Fusarium infection [Unknown]
  - Acute leukaemia [Fatal]
  - Neutropenia [Fatal]
